FAERS Safety Report 16098106 (Version 1)
Quarter: 2019Q1

REPORT INFORMATION
  Report Type: Spontaneous
  Country: IT (occurrence: IT)
  Receive Date: 20190320
  Receipt Date: 20190320
  Transmission Date: 20190418
  Serious: Yes (Hospitalization)
  Sender: FDA-Public Use
  Company Number: IT-ALLERGAN-1912276US

PATIENT
  Sex: Male

DRUGS (3)
  1. CARBOLITHIUM [Suspect]
     Active Substance: LITHIUM CARBONATE
     Indication: DRUG ABUSE
     Route: 048
     Dates: start: 20190221, end: 20190221
  2. MIRTAZAPINE. [Suspect]
     Active Substance: MIRTAZAPINE
     Indication: DRUG ABUSE
     Route: 048
     Dates: start: 20190221, end: 20190221
  3. CITALOPRAM HYDROBROMIDE - BP [Suspect]
     Active Substance: CITALOPRAM HYDROBROMIDE
     Indication: DRUG ABUSE
     Route: 048
     Dates: start: 20190221, end: 20190221

REACTIONS (3)
  - Toxicity to various agents [Unknown]
  - Intentional self-injury [Unknown]
  - Sopor [Unknown]

NARRATIVE: CASE EVENT DATE: 20190221
